FAERS Safety Report 25812030 (Version 4)
Quarter: 2025Q4

REPORT INFORMATION
  Report Type: Report from Study
  Country: JP (occurrence: JP)
  Receive Date: 20250917
  Receipt Date: 20251107
  Transmission Date: 20260118
  Serious: Yes (Hospitalization, Other)
  Sender: GALDERMA
  Company Number: JP-GALDERMA-JP2025017544

PATIENT

DRUGS (21)
  1. NEMOLIZUMAB [Suspect]
     Active Substance: NEMOLIZUMAB
     Indication: Dermatitis atopic
     Dosage: 60 MILLIGRAM/4 WEEKS
     Route: 058
     Dates: start: 20240201, end: 20240201
  2. NEMOLIZUMAB [Suspect]
     Active Substance: NEMOLIZUMAB
     Dosage: 60 MILLIGRAM/4 WEEKS
     Route: 058
     Dates: start: 20240229, end: 20240229
  3. NEMOLIZUMAB [Suspect]
     Active Substance: NEMOLIZUMAB
     Dosage: 60 MILLIGRAM/4 WEEKS
     Route: 058
     Dates: start: 20240328, end: 20240328
  4. NEMOLIZUMAB [Suspect]
     Active Substance: NEMOLIZUMAB
     Dosage: 60 MILLIGRAM/4 WEEKS
     Route: 058
     Dates: start: 20240425, end: 20240425
  5. NEMOLIZUMAB [Suspect]
     Active Substance: NEMOLIZUMAB
     Dosage: 60 MILLIGRAM/5 WEEKS
     Route: 058
     Dates: start: 20240530, end: 20240530
  6. NEMOLIZUMAB [Suspect]
     Active Substance: NEMOLIZUMAB
     Dosage: 60 MILLIGRAM/4 WEEKS
     Route: 058
     Dates: start: 20240627, end: 20240627
  7. NEMOLIZUMAB [Suspect]
     Active Substance: NEMOLIZUMAB
     Dosage: 60 MILLIGRAM/6 WEEKS
     Route: 058
     Dates: start: 20240808, end: 20240808
  8. NEMOLIZUMAB [Suspect]
     Active Substance: NEMOLIZUMAB
     Dosage: 60 MILLIGRAM/13 WEEKS
     Route: 058
     Dates: start: 20241113, end: 20241113
  9. NEMOLIZUMAB [Suspect]
     Active Substance: NEMOLIZUMAB
     Dosage: 60 MILLIGRAM/4 WEEKS
     Route: 058
     Dates: start: 20241209, end: 20241209
  10. NEMOLIZUMAB [Suspect]
     Active Substance: NEMOLIZUMAB
     Dosage: 60 MILLIGRAM/4 WEEKS
     Route: 058
     Dates: start: 20250106, end: 20250106
  11. NEMOLIZUMAB [Suspect]
     Active Substance: NEMOLIZUMAB
     Dosage: 60 MILLIGRAM/4 WEEKS
     Route: 058
     Dates: start: 20250203, end: 20250203
  12. NEMOLIZUMAB [Suspect]
     Active Substance: NEMOLIZUMAB
     Dosage: 60 MILLIGRAM/4 WEEKS
     Route: 058
     Dates: start: 20250303, end: 20250303
  13. NEMOLIZUMAB [Suspect]
     Active Substance: NEMOLIZUMAB
     Dosage: 60 MILLIGRAM/4 WEEKS
     Route: 058
     Dates: start: 20250331, end: 20250331
  14. NEMOLIZUMAB [Suspect]
     Active Substance: NEMOLIZUMAB
     Dosage: 60 MILLIGRAM/4 WEEKS
     Route: 058
     Dates: start: 20250428, end: 20250428
  15. NEMOLIZUMAB [Suspect]
     Active Substance: NEMOLIZUMAB
     Dosage: 60 MILLIGRAM/4 WEEKS
     Route: 058
     Dates: start: 20250526, end: 20250526
  16. NEMOLIZUMAB [Suspect]
     Active Substance: NEMOLIZUMAB
     Dosage: 60 MILLIGRAM/4 WEEKS
     Route: 058
     Dates: start: 20250623, end: 20250623
  17. NEMOLIZUMAB [Suspect]
     Active Substance: NEMOLIZUMAB
     Dosage: 60 MILLIGRAM/3 WEEKS
     Route: 058
     Dates: start: 20250714
  18. BETAMETHASONE DIPROPIONATE [Concomitant]
     Active Substance: BETAMETHASONE DIPROPIONATE
     Indication: Dermatitis atopic
     Dosage: UNK
     Route: 061
  19. PETROLATUM [Concomitant]
     Active Substance: PETROLATUM
     Indication: Dermatitis atopic
     Route: 061
  20. NALFURAFINE HYDROCHLORIDE [Concomitant]
     Active Substance: NALFURAFINE HYDROCHLORIDE
     Indication: Pruritus
     Dosage: 2.5 MICROGRAM
     Route: 048
  21. BILASTINE [Concomitant]
     Active Substance: BILASTINE
     Indication: Dermatitis atopic
     Dosage: 20 MILLIGRAM
     Route: 048

REACTIONS (3)
  - Peritonitis [Recovering/Resolving]
  - Cellulitis [Recovering/Resolving]
  - Off label use [Recovered/Resolved]

NARRATIVE: CASE EVENT DATE: 20240101
